FAERS Safety Report 24905599 (Version 1)
Quarter: 2025Q1

REPORT INFORMATION
  Report Type: Report from Study
  Country: US (occurrence: US)
  Receive Date: 20250130
  Receipt Date: 20250130
  Transmission Date: 20250408
  Serious: Yes (Hospitalization, Other)
  Sender: ALNYLAM PHARMACEUTICALS
  Company Number: US-ALNYLAM PHARMACEUTICALS, INC.-ALN-2025-000531

PATIENT

DRUGS (2)
  1. GIVLAARI [Suspect]
     Active Substance: GIVOSIRAN SODIUM
     Indication: Porphyria acute
     Dosage: UNK UNK, MONTHLY
     Route: 065
     Dates: start: 20230928, end: 20230928
  2. HEMATIN [Concomitant]
     Active Substance: HEMATIN
     Indication: Product used for unknown indication
     Route: 065

REACTIONS (4)
  - Respiratory failure [Unknown]
  - Petit mal epilepsy [Unknown]
  - Aura [Unknown]
  - Ill-defined disorder [Recovered/Resolved]
